FAERS Safety Report 10165484 (Version 1)
Quarter: 2014Q2

REPORT INFORMATION
  Report Type: Spontaneous
  Country: US (occurrence: US)
  Receive Date: 20140510
  Receipt Date: 20140510
  Transmission Date: 20141212
  Serious: No
  Sender: FDA-Public Use
  Company Number: US-BRISTOL-MYERS SQUIBB COMPANY-20523379

PATIENT
  Age: 66 Year
  Sex: Female
  Weight: 83.9 kg

DRUGS (2)
  1. BYDUREON [Suspect]
     Indication: BLOOD GLUCOSE
     Dates: start: 20131101
  2. INVOKANA [Concomitant]

REACTIONS (1)
  - Injection site nodule [Unknown]
